FAERS Safety Report 13074270 (Version 1)
Quarter: 2016Q4

REPORT INFORMATION
  Report Type: Spontaneous
  Country: ME (occurrence: ME)
  Receive Date: 20161230
  Receipt Date: 20161230
  Transmission Date: 20170207
  Serious: Yes (Hospitalization)
  Sender: FDA-Public Use
  Company Number: ME-SA-2016SA232842

PATIENT
  Age: 69 Year
  Sex: Female

DRUGS (9)
  1. CARDIOPIRIN [Interacting]
     Active Substance: ASPIRIN
     Indication: CORONARY ARTERY DISEASE
     Route: 048
  2. SINTROM [Interacting]
     Active Substance: ACENOCOUMAROL
     Indication: ANGINA PECTORIS
     Dosage: DOSE- ACCORDING TO SCHEMA
     Route: 048
  3. SINTROM [Interacting]
     Active Substance: ACENOCOUMAROL
     Indication: CORONARY ARTERY DISEASE
     Dosage: DOSE- ACCORDING TO SCHEMA
     Route: 048
  4. CARDIOPIRIN [Interacting]
     Active Substance: ASPIRIN
     Indication: ACUTE MYOCARDIAL INFARCTION
     Route: 048
  5. PLAVIX [Interacting]
     Active Substance: CLOPIDOGREL BISULFATE
     Indication: ACUTE MYOCARDIAL INFARCTION
     Route: 048
  6. PLAVIX [Suspect]
     Active Substance: CLOPIDOGREL BISULFATE
     Indication: ANGINA PECTORIS
     Route: 048
  7. PLAVIX [Interacting]
     Active Substance: CLOPIDOGREL BISULFATE
     Indication: CORONARY ARTERY DISEASE
     Route: 048
  8. CARDIOPIRIN [Interacting]
     Active Substance: ASPIRIN
     Indication: ANGINA PECTORIS
     Route: 048
  9. SINTROM [Interacting]
     Active Substance: ACENOCOUMAROL
     Indication: ACUTE MYOCARDIAL INFARCTION
     Dosage: DOSE- ACCORDING TO SCHEMA
     Route: 048

REACTIONS (2)
  - Blood disorder [Unknown]
  - Potentiating drug interaction [Unknown]
